FAERS Safety Report 9664125 (Version 1)
Quarter: 2013Q4

REPORT INFORMATION
  Report Type: Report from Study
  Country: US (occurrence: US)
  Receive Date: 20131101
  Receipt Date: 20131101
  Transmission Date: 20140711
  Serious: Yes (Death)
  Sender: FDA-Public Use
  Company Number: US-SA-2013SA112281

PATIENT
  Sex: Male

DRUGS (3)
  1. DOCETAXEL [Suspect]
     Indication: PROSTATE CANCER METASTATIC
     Dosage: INFUSION, RUN-IN PHASE
     Route: 065
  2. DOCETAXEL [Suspect]
     Indication: PROSTATE CANCER METASTATIC
     Dosage: INFUSION
     Route: 065
  3. MONOCLONAL ANTIBODIES [Suspect]
     Indication: PROSTATE CANCER METASTATIC
     Route: 042

REACTIONS (2)
  - Pneumonitis [Fatal]
  - Pulmonary fibrosis [Fatal]
